FAERS Safety Report 21080634 (Version 1)
Quarter: 2022Q3

REPORT INFORMATION
  Report Type: Spontaneous
  Country: US (occurrence: US)
  Receive Date: 20220714
  Receipt Date: 20220714
  Transmission Date: 20221026
  Serious: No
  Sender: FDA-Public Use
  Company Number: US-RECKITT BENCKISER HEALTHCARE INT LIMITED-RB-084699-2022

PATIENT
  Age: 44 Year
  Sex: Female

DRUGS (1)
  1. MUCINEX DM MAXIMUM STRENGTH [Suspect]
     Active Substance: DEXTROMETHORPHAN HYDROBROMIDE\GUAIFENESIN
     Indication: COVID-19
     Dosage: UNK
     Route: 048
     Dates: start: 20220209, end: 20220211

REACTIONS (4)
  - Malaise [Recovered/Resolved]
  - Product use in unapproved indication [Unknown]
  - Product complaint [Unknown]
  - Nausea [Recovered/Resolved]
